FAERS Safety Report 9357564 (Version 1)
Quarter: 2013Q2

REPORT INFORMATION
  Report Type: Spontaneous
  Country: US (occurrence: US)
  Receive Date: 20130620
  Receipt Date: 20130620
  Transmission Date: 20140414
  Serious: No
  Sender: FDA-Public Use
  Company Number: US-BAYER-2013-075286

PATIENT
  Age: 50 Year
  Sex: Male

DRUGS (1)
  1. MAGNEVIST [Suspect]
     Dosage: 18 ML, UNK

REACTIONS (4)
  - Nausea [None]
  - Vomiting [None]
  - Urticaria [None]
  - Eye irritation [None]
